FAERS Safety Report 20617298 (Version 1)
Quarter: 2022Q1

REPORT INFORMATION
  Report Type: 
  Country: None (occurrence: None)
  Receive Date: 20220321
  Receipt Date: 20220321
  Transmission Date: 20220423
  Serious: No
  Sender: FDA-Public Use
  Company Number: None

PATIENT
  Age: 71 Year
  Sex: Female

DRUGS (1)
  1. ZIOPTAN [Suspect]
     Active Substance: TAFLUPROST

REACTIONS (7)
  - Eye pain [Unknown]
  - Headache [Unknown]
  - Toothache [Unknown]
  - Oral pain [Unknown]
  - Photophobia [Unknown]
  - Drug ineffective [Unknown]
  - Intraocular pressure increased [Unknown]
